FAERS Safety Report 8333503 (Version 7)
Quarter: 2013Q2

REPORT INFORMATION
  Report Type: Spontaneous
  Country: US (occurrence: None)
  Receive Date: 20120105
  Receipt Date: 20130415
  Transmission Date: 20140414
  Serious: Yes (Hospitalization)
  Sender: FDA-Public Use
  Company Number: AUR-APL-2012-00075

PATIENT
  Age: 84 Year
  Sex: Male
  Weight: 77.1 kg

DRUGS (18)
  1. LISINOPRIL [Suspect]
     Indication: HYPERTENSION
     Route: 048
     Dates: start: 1989, end: 20110619
  2. METOPROLOL TARTRATE [Suspect]
     Indication: HYPERTENSION
     Route: 048
     Dates: start: 2000, end: 20110617
  3. METOPROLOL TARTRATE [Suspect]
     Indication: RHEUMATOID ARTHRITIS
     Route: 048
     Dates: start: 2000, end: 20110617
  4. CELECOXIB\IBUPROFEN\NAPROXEN [Suspect]
     Indication: OSTEOARTHRITIS
     Dates: start: 20100324
  5. CELECOXIB\IBUPROFEN\NAPROXEN [Suspect]
     Indication: RHEUMATOID ARTHRITIS
     Dates: start: 20100324
  6. NIFEDIPINE [Suspect]
     Indication: HYPERTENSION
     Dosage: 60 MG (60 MG, 1 IN 1 D), ORAL
     Route: 048
     Dates: start: 2010, end: 20110617
  7. PRAZOSIN HYDROCHLORIDE [Suspect]
     Indication: HYPERTENSION
     Dosage: 2 MG (2 MG, 1 IN 1 D), ORAL
     Route: 048
     Dates: start: 2002, end: 20110617
  8. NEXIUM [Concomitant]
  9. GABAPENTIN (GABAPENTIN) [Concomitant]
  10. CLONIDINE TRANSDERMAL SYSTEM [Concomitant]
  11. VITAMIN D (ERGOCALCIFEROL) [Concomitant]
  12. TAMSULOSIN HYDROCHLORIDE [Concomitant]
  13. GEMFIBROZIL [Concomitant]
  14. VITAMIN B COMPLEX (B-KOMPLEX) [Concomitant]
  15. AGGRENOX/ ASA (ASASANTIN) /00580301/ [Concomitant]
  16. TRAMADOL HYDROCHLORIDE [Concomitant]
  17. LOVASTATIN [Concomitant]
  18. METFORMIN HYDROCHLORIDE [Concomitant]

REACTIONS (2)
  - Presyncope [None]
  - Orthostatic hypotension [None]
